FAERS Safety Report 15085213 (Version 1)
Quarter: 2018Q2

REPORT INFORMATION
  Report Type: Spontaneous
  Country: BR (occurrence: BR)
  Receive Date: 20180628
  Receipt Date: 20180628
  Transmission Date: 20180711
  Serious: Yes (Other)
  Sender: FDA-Public Use
  Company Number: PHHY2018BR026387

PATIENT
  Age: 80 Year
  Sex: Male
  Weight: 74 kg

DRUGS (10)
  1. SINVASTACOR [Suspect]
     Active Substance: SIMVASTATIN
     Indication: PRODUCT USED FOR UNKNOWN INDICATION
     Dosage: UNK
     Route: 065
  2. FIRMAGON [Concomitant]
     Active Substance: DEGARELIX ACETATE
     Indication: PROSTATE CANCER
     Dosage: UNK
     Route: 065
  3. XALATAN [Suspect]
     Active Substance: LATANOPROST
     Indication: INTRAOCULAR PRESSURE TEST
  4. ALPHAGAN P [Concomitant]
     Active Substance: BRIMONIDINE TARTRATE
     Indication: GLAUCOMA
     Dosage: UNK
     Route: 065
  5. CAPTOPRIL. [Suspect]
     Active Substance: CAPTOPRIL
     Indication: HYPERTENSION
     Dosage: UNK
     Route: 065
     Dates: start: 2008
  6. ZOLADEX [Concomitant]
     Active Substance: GOSERELIN ACETATE
     Indication: PROSTATE CANCER
     Dosage: 360 MG, UNK
     Route: 065
     Dates: start: 200910
  7. ALENIA [Concomitant]
     Active Substance: BUDESONIDE\FORMOTEROL FUMARATE
     Indication: EMPHYSEMA
     Dosage: UNK
     Route: 065
  8. XALACOM [Suspect]
     Active Substance: LATANOPROST\TIMOLOL MALEATE
     Indication: INTRAOCULAR PRESSURE TEST
  9. XALACOM [Suspect]
     Active Substance: LATANOPROST\TIMOLOL MALEATE
     Indication: GLAUCOMA
     Dosage: 1 GTT, QD (ONE DROP IN EYE)
     Route: 047
     Dates: start: 2014
  10. XALATAN [Suspect]
     Active Substance: LATANOPROST
     Indication: GLAUCOMA
     Dosage: 1 GTT, QD (ONE DROP IN EYE)
     Route: 047

REACTIONS (22)
  - Concomitant disease aggravated [Not Recovered/Not Resolved]
  - Cough [Unknown]
  - Intraocular pressure test [Unknown]
  - Feeling hot [Unknown]
  - Spinal pain [Unknown]
  - Emphysema [Not Recovered/Not Resolved]
  - Ulcer [Unknown]
  - Pyrexia [Unknown]
  - Wrong drug administered [Unknown]
  - Hyperhidrosis [Recovered/Resolved]
  - Vertigo [Unknown]
  - Metastases to bone [Unknown]
  - Dementia Alzheimer^s type [Unknown]
  - Sinusitis [Unknown]
  - Influenza [Unknown]
  - Dyspnoea [Unknown]
  - Benign prostatic hyperplasia [Unknown]
  - Cardiac discomfort [Unknown]
  - Asthenia [Unknown]
  - Drug dispensing error [Unknown]
  - Fatigue [Unknown]
  - Eyelid disorder [Unknown]

NARRATIVE: CASE EVENT DATE: 20180520
